FAERS Safety Report 6674539-2 (Version None)
Quarter: 2010Q2

REPORT INFORMATION
  Report Type: 
  Country: None (occurrence: None)
  Receive Date: 20100409
  Receipt Date: 20100331
  Transmission Date: 20101027
  Serious: Yes (Other)
  Sender: FDA-Public Use
  Company Number: US-PFIZER INC-2010042098

PATIENT
  Sex: Male
  Weight: 72.6 kg

DRUGS (5)
  1. LIPITOR [Suspect]
     Indication: BLOOD CHOLESTEROL INCREASED
     Dosage: 40 MG, 1X/DAY
     Route: 048
     Dates: start: 20080101
  2. JANUVIA [Concomitant]
     Indication: DIABETES MELLITUS
     Dosage: 75 MG, UNK
  3. COREG [Concomitant]
     Indication: HYPERTENSION
     Dosage: 25 MG, 2X/DAY
  4. HYZAAR [Concomitant]
     Indication: HYPERTENSION
     Dosage: 100/12.5MG
  5. ACETYLSALICYLIC ACID [Concomitant]
     Indication: AORTIC VALVE INCOMPETENCE
     Dosage: 81 MG, 1X/DAY

REACTIONS (3)
  - LETHARGY [None]
  - MUSCULAR WEAKNESS [None]
  - PAIN IN EXTREMITY [None]
